FAERS Safety Report 8322414-X (Version None)
Quarter: 2012Q2

REPORT INFORMATION
  Report Type: 
  Country: None (occurrence: None)
  Receive Date: 20120430
  Receipt Date: 20120423
  Transmission Date: 20120825
  Serious: Yes (Hospitalization)
  Sender: FDA-Public Use
  Company Number: IT-ASTRAZENECA-2012SE08091

PATIENT
  Sex: Female

DRUGS (11)
  1. SYMBICORT [Suspect]
     Dosage: 1 PUFF IN THE MORNING
     Route: 055
  2. SYMBICORT [Suspect]
     Indication: ASTHMA EXERCISE INDUCED
     Dosage: 160/4.5 MCG TURBOHALER, INTERMITTENT
     Route: 055
     Dates: start: 20101222
  3. VENTOLIN [Suspect]
     Indication: ASTHMA EXERCISE INDUCED
     Dosage: 100 MCG SUSPENTION FOR INHALATION
     Route: 055
     Dates: start: 20101222
  4. AVAMYS (FLUTICASONE FUROATE) [Concomitant]
     Dosage: 27,5 MCG/NASAL SPRY SUSPENSION
     Route: 045
  5. DIBASE (CHOLECALCIFEROL) [Concomitant]
     Dosage: 25 DROPS PER WEEK
     Route: 048
  6. LORAZEPAM [Concomitant]
     Dosage: DOSE USED: 2.5 MG; DAILY DOSE: 1.25 MG IN THE EVENING
     Route: 048
  7. CALCIUM [Concomitant]
     Dosage: CALCIUM 1000 MG/DAY IN THE EVENING
     Route: 048
  8. EBASTINE [Concomitant]
     Dosage: 10 MG/DAY IN THE EVENING
     Route: 048
  9. VENTOLIN [Suspect]
     Dosage: 1-2 PUFFS 30 MINUTES BEFORE PHYSICAL ACTIVITY
     Route: 055
     Dates: start: 20101222
  10. FLUVOXAMINE MALEATE [Suspect]
     Indication: DEPRESSION
     Dosage: DOSE USED: FLUVOXAMINE 100 MG; DAILY DOSE: 50 MG IN THE EVENING
     Route: 048
     Dates: start: 19970411
  11. DIFOSFONAL (CLODRONIC ACID) [Concomitant]
     Dosage: DIFOSFONAL 100 MG, ONE VIAL EVERY 15 DAYS

REACTIONS (5)
  - VENTRICULAR ARRHYTHMIA [None]
  - SYNCOPE [None]
  - CRANIOCEREBRAL INJURY [None]
  - SUBARACHNOID HAEMORRHAGE [None]
  - FACIAL BONES FRACTURE [None]
